FAERS Safety Report 8825614 (Version 1)
Quarter: 2012Q4

REPORT INFORMATION
  Report Type: 
  Country: US (occurrence: US)
  Receive Date: 20121004
  Receipt Date: 20121004
  Transmission Date: 20130627
  Serious: No
  Sender: FDA-Public Use
  Company Number: US-009507513-1210USA001481

PATIENT
  Age: 32 Year
  Sex: Female

DRUGS (2)
  1. SAPHRIS [Suspect]
     Dosage: 5 mg, qd
     Route: 060
     Dates: start: 20120604, end: 20121001
  2. GABAPENTIN [Concomitant]

REACTIONS (1)
  - Akathisia [Unknown]
